FAERS Safety Report 4890727-X (Version None)
Quarter: 2006Q1

REPORT INFORMATION
  Report Type: 
  Country: None (occurrence: None)
  Receive Date: 20060125
  Receipt Date: 20030424
  Transmission Date: 20060701
  Serious: Yes (Other)
  Sender: FDA-Public Use
  Company Number: US-BRISTOL-MYERS SQUIBB COMPANY-12261426

PATIENT
  Age: 27 Year
  Sex: Female

DRUGS (5)
  1. STADOL [Suspect]
     Route: 045
     Dates: start: 19970317, end: 19971001
  2. BUTALBITAL ACETAMINOPHEN AND CAFFEINE [Concomitant]
  3. HYDROCODONE + ACETAMINOPHEN [Concomitant]
  4. CARISOPRODOL [Concomitant]
  5. DIAZEPAM [Concomitant]

REACTIONS (1)
  - DEPENDENCE [None]
